FAERS Safety Report 11158291 (Version 1)
Quarter: 2015Q2

REPORT INFORMATION
  Report Type: Spontaneous
  Country: US (occurrence: US)
  Receive Date: 20150603
  Receipt Date: 20150603
  Transmission Date: 20150821
  Serious: No
  Sender: FDA-Public Use
  Company Number: US-BIOGENIDEC-2015BI074832

PATIENT
  Sex: Female

DRUGS (3)
  1. TECFIDERA [Suspect]
     Active Substance: DIMETHYL FUMARATE
     Indication: PRODUCT USED FOR UNKNOWN INDICATION
  2. SOLUMEDROL INFUSIONS [Concomitant]
  3. BETASERON [Concomitant]
     Active Substance: INTERFERON BETA-1B

REACTIONS (5)
  - Drug ineffective [Unknown]
  - Balance disorder [Unknown]
  - Fall [Unknown]
  - White blood cell count increased [Unknown]
  - Multiple sclerosis relapse [Unknown]
